FAERS Safety Report 7226615-3 (Version None)
Quarter: 2011Q1

REPORT INFORMATION
  Report Type: 
  Country: None (occurrence: None)
  Receive Date: 20110114
  Receipt Date: 20110104
  Transmission Date: 20110831
  Serious: Yes (Hospitalization)
  Sender: FDA-Public Use
  Company Number: US-MYLANLABS-2011S1000242

PATIENT
  Sex: Female

DRUGS (1)
  1. BUPROPION HYDROCHLORIDE [Suspect]

REACTIONS (7)
  - ABASIA [None]
  - CONFUSIONAL STATE [None]
  - CRYING [None]
  - OPISTHOTONUS [None]
  - INCOHERENT [None]
  - ANGER [None]
  - BALANCE DISORDER [None]
